FAERS Safety Report 25611772 (Version 1)
Quarter: 2025Q3

REPORT INFORMATION
  Report Type: Report from Study
  Country: ZA (occurrence: ZA)
  Receive Date: 20250728
  Receipt Date: 20250728
  Transmission Date: 20251021
  Serious: Yes (Hospitalization)
  Sender: ALEXION PHARMACEUTICALS
  Company Number: ZA-AstraZeneca-CH-00915525A

PATIENT
  Age: 82 Year
  Sex: Male

DRUGS (7)
  1. BUDESONIDE\FORMOTEROL [Suspect]
     Active Substance: BUDESONIDE\FORMOTEROL
     Indication: Asthma
  2. Omiflux [Concomitant]
     Indication: Ulcer
  3. ACETYLCYSTEINE [Concomitant]
     Active Substance: ACETYLCYSTEINE
     Route: 065
  4. RIVAROXABAN [Concomitant]
     Active Substance: RIVAROXABAN
     Indication: Anticoagulant therapy
     Route: 065
  5. FUROSEMIDE [Concomitant]
     Active Substance: FUROSEMIDE
     Indication: Hypertension
  6. Spiractin [Concomitant]
     Indication: Hypertension
  7. DAPAGLIFLOZIN PROPANEDIOL [Concomitant]
     Active Substance: DAPAGLIFLOZIN PROPANEDIOL
     Indication: Diabetes mellitus

REACTIONS (1)
  - Cardiac failure [Unknown]
